FAERS Safety Report 6661936-4 (Version None)
Quarter: 2010Q1

REPORT INFORMATION
  Report Type: 
  Country: None (occurrence: None)
  Receive Date: 20100331
  Receipt Date: 20091008
  Transmission Date: 20100710
  Serious: No
  Sender: FDA-Public Use
  Company Number: US-BRISTOL-MYERS SQUIBB COMPANY-14813638

PATIENT
  Age: 5 Decade
  Sex: Male

DRUGS (2)
  1. ERBITUX [Suspect]
     Indication: LUNG NEOPLASM MALIGNANT
     Route: 042
     Dates: start: 20091005
  2. BENADRYL [Concomitant]
     Indication: PREMEDICATION

REACTIONS (2)
  - PRURITUS GENERALISED [None]
  - RASH [None]
